FAERS Safety Report 15576836 (Version 1)
Quarter: 2018Q4

REPORT INFORMATION
  Report Type: Spontaneous
  Country: US (occurrence: US)
  Receive Date: 20181101
  Receipt Date: 20181101
  Transmission Date: 20190205
  Serious: No
  Sender: FDA-Public Use
  Company Number: US-SHIRE-US201841531

PATIENT
  Age: 69 Year
  Sex: Female
  Weight: 68.27 kg

DRUGS (2)
  1. XIIDRA [Suspect]
     Active Substance: LIFITEGRAST
     Indication: DRY EYE
     Dosage: 1 GTT, 2X/DAY:BID
     Route: 047
     Dates: start: 201809, end: 201810
  2. METOPROLOL. [Concomitant]
     Active Substance: METOPROLOL
     Indication: HEART RATE INCREASED

REACTIONS (3)
  - Eye infection [Not Recovered/Not Resolved]
  - Gastroenteritis viral [Recovered/Resolved]
  - Instillation site reaction [Unknown]

NARRATIVE: CASE EVENT DATE: 201809
